FAERS Safety Report 8844763 (Version 1)
Quarter: 2012Q4

REPORT INFORMATION
  Report Type: 
  Country: AU (occurrence: AU)
  Receive Date: 20121017
  Receipt Date: 20121017
  Transmission Date: 20130627
  Serious: Yes (Other)
  Sender: FDA-Public Use
  Company Number: PHHY2012AU091508

PATIENT
  Age: 14 Year
  Sex: Male

DRUGS (5)
  1. ACLASTA [Suspect]
     Dosage: UNK UKN, UNK
     Route: 042
  2. CALCITRIOL [Concomitant]
  3. CALCIUM [Concomitant]
  4. PERINDOPRIL [Concomitant]
  5. PREDNISOLONE [Concomitant]

REACTIONS (4)
  - Hypophosphataemia [Unknown]
  - Asthenia [Unknown]
  - Malaise [Unknown]
  - Vomiting [Unknown]
